FAERS Safety Report 10733986 (Version 1)
Quarter: 2015Q1

REPORT INFORMATION
  Report Type: Spontaneous
  Country: US (occurrence: US)
  Receive Date: 20150123
  Receipt Date: 20150123
  Transmission Date: 20150721
  Serious: No
  Sender: FDA-Public Use
  Company Number: US-GLAXOSMITHKLINE-US2014GSK048206

PATIENT
  Age: 66 Year
  Sex: Female

DRUGS (28)
  1. BUMEX [Concomitant]
     Active Substance: BUMETANIDE
  2. LANTUS [Concomitant]
     Active Substance: INSULIN GLARGINE
  3. CLARITIN [Concomitant]
     Active Substance: LORATADINE
  4. ADVAIR HFA [Suspect]
     Active Substance: FLUTICASONE PROPIONATE\SALMETEROL XINAFOATE
     Indication: DYSPNOEA
  5. BEANO [Concomitant]
     Active Substance: ASPERGILLUS NIGER .ALPHA.-GALACTOSIDASE
  6. GAS-X [Concomitant]
     Active Substance: DIMETHICONE
  7. DAIRY EASE [Concomitant]
  8. ADVAIR HFA [Suspect]
     Active Substance: FLUTICASONE PROPIONATE\SALMETEROL XINAFOATE
     Indication: DYSPHONIA
     Dosage: 1 PUFF(S), BID
     Route: 055
     Dates: start: 20141113, end: 20141121
  9. PENTASA [Concomitant]
     Active Substance: MESALAMINE
  10. PRILOSEC [Concomitant]
     Active Substance: OMEPRAZOLE MAGNESIUM
  11. DICYCLOMINE [Concomitant]
     Active Substance: DICYCLOMINE HYDROCHLORIDE
  12. WELLBUTRIN [Concomitant]
     Active Substance: BUPROPION HYDROCHLORIDE
  13. NEURONTIN [Concomitant]
     Active Substance: GABAPENTIN
  14. LISINOPRIL. [Concomitant]
     Active Substance: LISINOPRIL
  15. VITAMIN C [Concomitant]
     Active Substance: ASCORBIC ACID
  16. ASPIRIN. [Concomitant]
     Active Substance: ASPIRIN
  17. ROBAXIN [Concomitant]
     Active Substance: METHOCARBAMOL
  18. HYDROCODONE [Concomitant]
     Active Substance: HYDROCODONE
  19. CALCIUM [Concomitant]
     Active Substance: CALCIUM
  20. CARBATROL [Concomitant]
     Active Substance: CARBAMAZEPINE
  21. BIOTIN [Concomitant]
     Active Substance: BIOTIN
  22. HUMALOG [Concomitant]
     Active Substance: INSULIN LISPRO
  23. BENADRYL [Concomitant]
     Active Substance: DIPHENHYDRAMINE HYDROCHLORIDE
  24. TRAZODONE [Concomitant]
     Active Substance: TRAZODONE HYDROCHLORIDE
  25. CRESTOR [Concomitant]
     Active Substance: ROSUVASTATIN CALCIUM
  26. SPIRONOLACTONE. [Concomitant]
     Active Substance: SPIRONOLACTONE
  27. PLAQUENIL [Concomitant]
     Active Substance: HYDROXYCHLOROQUINE SULFATE
  28. BENLYSTA [Concomitant]
     Active Substance: BELIMUMAB

REACTIONS (6)
  - Parosmia [Not Recovered/Not Resolved]
  - Dysgeusia [Not Recovered/Not Resolved]
  - Decreased appetite [Unknown]
  - Fatigue [Recovering/Resolving]
  - Off label use [Recovered/Resolved]
  - Blood glucose abnormal [Unknown]

NARRATIVE: CASE EVENT DATE: 20141113
